FAERS Safety Report 8168589-7 (Version None)
Quarter: 2012Q1

REPORT INFORMATION
  Report Type: 
  Country: None (occurrence: None)
  Receive Date: 20120227
  Receipt Date: 20120217
  Transmission Date: 20120608
  Serious: Yes (Other)
  Sender: FDA-Public Use
  Company Number: AT-ABBOTT-12P-009-0895623-00

PATIENT
  Sex: Female
  Weight: 66 kg

DRUGS (3)
  1. CIPROFLOXACIN HYDROCHLORIDE [Concomitant]
     Indication: PRODUCT USED FOR UNKNOWN INDICATION
     Dates: start: 20100902, end: 20101010
  2. METHYLPREDNISOLONE [Concomitant]
     Indication: INFLAMMATION
     Dates: start: 20100913, end: 20100928
  3. HUMIRA [Suspect]
     Indication: CROHN'S DISEASE
     Dosage: 160 MG (BASELINE) / 80 MG (WEEK 2)
     Route: 058
     Dates: start: 20080316, end: 20101001

REACTIONS (1)
  - COLECTOMY [None]
